FAERS Safety Report 6756067-9 (Version None)
Quarter: 2010Q2

REPORT INFORMATION
  Report Type: 
  Country: None (occurrence: None)
  Receive Date: 20100604
  Receipt Date: 20100526
  Transmission Date: 20101027
  Serious: Yes (Hospitalization)
  Sender: FDA-Public Use
  Company Number: DK-JNJFOC-20100510162

PATIENT
  Age: 75 Year
  Sex: Male

DRUGS (2)
  1. REMICADE [Suspect]
     Indication: COLITIS ULCERATIVE
     Route: 042
  2. REMICADE [Suspect]
     Route: 042

REACTIONS (4)
  - ANTIBODY TEST ABNORMAL [None]
  - ARTHRITIS ENTEROPATHIC [None]
  - COLITIS ULCERATIVE [None]
  - IMMUNE COMPLEX LEVEL INCREASED [None]
